FAERS Safety Report 12869027 (Version 3)
Quarter: 2016Q4

REPORT INFORMATION
  Report Type: Spontaneous
  Country: US (occurrence: US)
  Receive Date: 20161021
  Receipt Date: 20161031
  Transmission Date: 20170207
  Serious: Yes (Hospitalization)
  Sender: FDA-Public Use
  Company Number: US-PFIZER INC-2016489056

PATIENT
  Age: 67 Year
  Sex: Female
  Weight: 109 kg

DRUGS (2)
  1. LASIX [Concomitant]
     Active Substance: FUROSEMIDE
     Indication: BLOOD PRESSURE ABNORMAL
     Dosage: 40 MG, UNK
  2. LYRICA [Suspect]
     Active Substance: PREGABALIN

REACTIONS (5)
  - Gastric disorder [Unknown]
  - Neuropathy peripheral [Unknown]
  - Malaise [Unknown]
  - Pain [Unknown]
  - Abdominal pain upper [Unknown]
